FAERS Safety Report 25741127 (Version 1)
Quarter: 2025Q3

REPORT INFORMATION
  Report Type: Spontaneous
  Country: US (occurrence: US)
  Receive Date: 20250829
  Receipt Date: 20250829
  Transmission Date: 20251021
  Serious: No
  Sender: IPSEN BIOPHARMACEUTICALS, INC.
  Company Number: US-Albireo AB-2023ALB000373

PATIENT
  Sex: Male

DRUGS (10)
  1. BYLVAY [Suspect]
     Active Substance: ODEVIXIBAT
     Indication: Alagille syndrome
     Route: 048
     Dates: start: 20230726, end: 20231121
  2. BYLVAY [Suspect]
     Active Substance: ODEVIXIBAT
     Route: 048
     Dates: start: 20231122
  3. BYLVAY [Suspect]
     Active Substance: ODEVIXIBAT
     Route: 048
  4. BYLVAY [Suspect]
     Active Substance: ODEVIXIBAT
     Route: 048
  5. BYLVAY [Suspect]
     Active Substance: ODEVIXIBAT
     Route: 048
  6. BYLVAY [Suspect]
     Active Substance: ODEVIXIBAT
     Route: 048
  7. URSODIOL [Concomitant]
     Active Substance: URSODIOL
     Indication: Product used for unknown indication
  8. VITAMIN K [Concomitant]
     Active Substance: PHYTONADIONE
     Indication: Product used for unknown indication
  9. VITAMINS [Concomitant]
     Active Substance: VITAMINS
     Indication: Product used for unknown indication
  10. SODIUM BICARBONATE [Concomitant]
     Active Substance: SODIUM BICARBONATE
     Indication: Product used for unknown indication

REACTIONS (7)
  - Intentional product use issue [Recovered/Resolved]
  - Treatment noncompliance [Not Recovered/Not Resolved]
  - Diarrhoea [Recovered/Resolved]
  - Off label use [Recovered/Resolved]
  - Treatment noncompliance [Recovered/Resolved]
  - Product use issue [Recovered/Resolved]
  - Pruritus [Not Recovered/Not Resolved]

NARRATIVE: CASE EVENT DATE: 20231122
